FAERS Safety Report 6239142-7 (Version None)
Quarter: 2009Q2

REPORT INFORMATION
  Report Type: 
  Country: None (occurrence: None)
  Receive Date: 20090618
  Receipt Date: 20090618
  Transmission Date: 20091009
  Serious: Yes (Disabling)
  Sender: FDA-Public Use
  Company Number: None

PATIENT
  Age: 63 Year
  Sex: Male
  Weight: 77.1115 kg

DRUGS (2)
  1. ZICAM - MATRIXX INITIATIVES [Suspect]
     Indication: AGEUSIA
     Dosage: 1 PUMP/NOSTRIL 4 GEL DS X 5 TIMES
     Dates: start: 20070205, end: 20070305
  2. ZICAM - MATRIXX INITIATIVES [Suspect]
     Indication: ANOSMIA
     Dosage: 1 PUMP/NOSTRIL 4 GEL DS X 5 TIMES
     Dates: start: 20070205, end: 20070305

REACTIONS (2)
  - AGEUSIA [None]
  - ANOSMIA [None]
